FAERS Safety Report 22639898 (Version 8)
Quarter: 2023Q4

REPORT INFORMATION
  Report Type: Spontaneous
  Country: US (occurrence: US)
  Receive Date: 20230626
  Receipt Date: 20231107
  Transmission Date: 20240110
  Serious: No
  Sender: FDA-Public Use
  Company Number: US-PFIZER INC-202300229566

PATIENT
  Age: 12 Year
  Sex: Male
  Weight: 36.281 kg

DRUGS (2)
  1. GENOTROPIN [Suspect]
     Active Substance: SOMATROPIN
     Dosage: UNK
  2. GENOTROPIN [Suspect]
     Active Substance: SOMATROPIN
     Dosage: 1.4 MG, DAILY (7 DAYS PER WEEK)
     Dates: start: 202303

REACTIONS (7)
  - Poor quality device used [Unknown]
  - Incorrect dose administered by device [Unknown]
  - Device leakage [Unknown]
  - Needle issue [Unknown]
  - Device information output issue [Unknown]
  - Device breakage [Unknown]
  - Device malfunction [Unknown]

NARRATIVE: CASE EVENT DATE: 20230601
